FAERS Safety Report 6819295-X (Version None)
Quarter: 2010Q3

REPORT INFORMATION
  Report Type: 
  Country: None (occurrence: None)
  Receive Date: 20100707
  Receipt Date: 20100707
  Transmission Date: 20110219
  Serious: Yes (Other)
  Sender: FDA-Public Use
  Company Number: LB-ROXANE LABORATORIES, INC.-2010-DE-02995GD

PATIENT
  Age: 11 Year
  Sex: Male

DRUGS (3)
  1. SERTRALINE [Suspect]
     Indication: OBSESSIVE-COMPULSIVE DISORDER
     Dosage: 50 MG
  2. SERTRALINE [Suspect]
     Dosage: 75 MG
  3. METHYLPHENIDATE [Suspect]
     Indication: ATTENTION DEFICIT/HYPERACTIVITY DISORDER
     Dosage: 45 MG

REACTIONS (3)
  - ENURESIS [None]
  - OBSESSIVE-COMPULSIVE DISORDER [None]
  - SOCIAL PHOBIA [None]
